FAERS Safety Report 5704608-2 (Version None)
Quarter: 2008Q2

REPORT INFORMATION
  Report Type: 
  Country: None (occurrence: None)
  Receive Date: 20080414
  Receipt Date: 20080402
  Transmission Date: 20081010
  Serious: Yes (Death, Life-Threatening, Hospitalization)
  Sender: FDA-Public Use
  Company Number: PT-BRISTOL-MYERS SQUIBB COMPANY-13750559

PATIENT
  Age: 41 Year
  Sex: Male

DRUGS (2)
  1. CISPLATIN [Suspect]
     Indication: SQUAMOUS CELL CARCINOMA
     Route: 042
     Dates: start: 20051227, end: 20051227
  2. FLUOROURACIL [Suspect]
     Indication: SQUAMOUS CELL CARCINOMA
     Route: 042
     Dates: start: 20051227, end: 20051227

REACTIONS (5)
  - DISEASE PROGRESSION [None]
  - DYSPNOEA [None]
  - FISTULA [None]
  - INFECTED NEOPLASM [None]
  - TUMOUR HAEMORRHAGE [None]
